FAERS Safety Report 8270972-6 (Version None)
Quarter: 2012Q2

REPORT INFORMATION
  Report Type: 
  Country: None (occurrence: None)
  Receive Date: 20120410
  Receipt Date: 20120329
  Transmission Date: 20120825
  Serious: Yes (Other)
  Sender: FDA-Public Use
  Company Number: US-ELI_LILLY_AND_COMPANY-US201204001191

PATIENT
  Age: 86 Year
  Sex: Female

DRUGS (2)
  1. CYMBALTA [Suspect]
     Dosage: 60 MG, QD
     Dates: start: 20120101
  2. CELEXA [Concomitant]
     Dosage: UNK
     Dates: end: 20120101

REACTIONS (1)
  - GASTROINTESTINAL TUBE INSERTION [None]
